FAERS Safety Report 10272474 (Version 1)
Quarter: 2014Q2

REPORT INFORMATION
  Report Type: Spontaneous
  Country: US (occurrence: None)
  Receive Date: 20140630
  Receipt Date: 20140630
  Transmission Date: 20141212
  Serious: Yes (Disabling, Other)
  Sender: FDA-Public Use
  Company Number: None

PATIENT
  Age: 50 Year
  Sex: Female
  Weight: 58.97 kg

DRUGS (1)
  1. ZYPREXA 10MG LILLY [Suspect]
     Indication: DRUG THERAPY
     Dosage: 1 PILL/INJECTIONS?ONCE DAILY?INTO THE MUSCLE

REACTIONS (4)
  - Weight increased [None]
  - Contusion [None]
  - Chest pain [None]
  - Feeling abnormal [None]
